FAERS Safety Report 4499376-9 (Version None)
Quarter: 2004Q4

REPORT INFORMATION
  Report Type: 
  Country: None (occurrence: None)
  Receive Date: 20041111
  Receipt Date: 20041012
  Transmission Date: 20050328
  Serious: Yes (Hospitalization, Other)
  Sender: FDA-Public Use
  Company Number: US-MERCK-0410USA01801

PATIENT
  Age: 59 Year
  Sex: Male
  Weight: 121 kg

DRUGS (6)
  1. VIOXX [Suspect]
     Indication: OSTEOARTHRITIS
     Route: 048
     Dates: start: 20000101, end: 20041006
  2. CARDURA [Concomitant]
     Route: 065
  3. HYZAAR [Concomitant]
     Route: 065
  4. SYNTHROID [Concomitant]
     Route: 065
  5. PROTONIX [Concomitant]
     Route: 065
     Dates: end: 20040101
  6. DICYCLOMINE HYDROCHLORIDE [Concomitant]
     Route: 065

REACTIONS (7)
  - CHEST PAIN [None]
  - DIZZINESS [None]
  - DYSPNOEA [None]
  - ELECTROCARDIOGRAM AMBULATORY ABNORMAL [None]
  - SINUS BRADYCARDIA [None]
  - SYNCOPE [None]
  - VISUAL DISTURBANCE [None]
